FAERS Safety Report 16170810 (Version 2)
Quarter: 2019Q2

REPORT INFORMATION
  Report Type: Spontaneous
  Country: DE (occurrence: DE)
  Receive Date: 20190408
  Receipt Date: 20190621
  Transmission Date: 20190711
  Serious: Yes (Other)
  Sender: FDA-Public Use
  Company Number: DE-MYLANLABS-2019M1031543

PATIENT
  Age: 58 Year
  Sex: Male
  Weight: 90 kg

DRUGS (2)
  1. VALSARTAN. [Suspect]
     Active Substance: VALSARTAN
     Indication: HYPERTENSION
     Dosage: 160 MILLIGRAM, QD
     Route: 048
     Dates: start: 20180314
  2. VALSARTAN. [Suspect]
     Active Substance: VALSARTAN
     Dosage: 160 MILLIGRAM, QD
     Route: 048
     Dates: end: 201808

REACTIONS (1)
  - Bladder cancer [Not Recovered/Not Resolved]

NARRATIVE: CASE EVENT DATE: 20180820
